FAERS Safety Report 8835756 (Version 1)
Quarter: 2012Q4

REPORT INFORMATION
  Report Type: 
  Country: BR (occurrence: BR)
  Receive Date: 20121011
  Receipt Date: 20121011
  Transmission Date: 20130627
  Serious: Yes (Other)
  Sender: FDA-Public Use
  Company Number: PHHY2012BR012811

PATIENT
  Sex: Male

DRUGS (4)
  1. DIOVAN [Suspect]
     Indication: HYPERTENSION
     Dosage: 2 tablet (80 mg) a day
     Route: 048
  2. DIOVAN [Suspect]
     Dosage: 1 tablet (160 mg) a day (in the morning)
     Route: 048
  3. ALPRAZOLAM [Suspect]
     Indication: PANIC DISORDER
     Dosage: 0.5 tablet in the morning and 1 tablet at night
     Route: 048
  4. LOSARTAN [Concomitant]
     Indication: HYPERTENSION

REACTIONS (4)
  - Diabetes mellitus [Unknown]
  - Blood pressure increased [Unknown]
  - Blood cholesterol abnormal [Unknown]
  - Drug ineffective [Unknown]
